FAERS Safety Report 5455640-8 (Version None)
Quarter: 2007Q3

REPORT INFORMATION
  Report Type: 
  Country: None (occurrence: None)
  Receive Date: 20070918
  Receipt Date: 20061107
  Transmission Date: 20080115
  Serious: No
  Sender: FDA-Public Use
  Company Number: US-ASTRAZENECA-2006UW22110

PATIENT
  Age: 39 Year
  Sex: Female

DRUGS (2)
  1. SEROQUEL [Suspect]
     Route: 048
     Dates: start: 20060201
  2. SERZONE [Suspect]

REACTIONS (6)
  - CRYING [None]
  - FEELING ABNORMAL [None]
  - MALAISE [None]
  - MEDICATION ERROR [None]
  - MOOD ALTERED [None]
  - VERTIGO [None]
